FAERS Safety Report 4846609-2 (Version None)
Quarter: 2005Q4

REPORT INFORMATION
  Report Type: 
  Country: None (occurrence: None)
  Receive Date: 20051202
  Receipt Date: 20051118
  Transmission Date: 20060501
  Serious: Yes (Hospitalization)
  Sender: FDA-Public Use
  Company Number: 8013061

PATIENT
  Sex: Male

DRUGS (3)
  1. KEPPRA [Suspect]
     Indication: PARTIAL SEIZURES WITH SECONDARY GENERALISATION
     Dosage: 500 MG 2/D PO
     Route: 048
     Dates: start: 20050801
  2. LAMOTRIGINE [Concomitant]
  3. EPILIM [Concomitant]

REACTIONS (4)
  - CONVULSION [None]
  - HYPOAESTHESIA [None]
  - INFECTION [None]
  - TACHYCARDIA [None]
